FAERS Safety Report 18151916 (Version 1)
Quarter: 2020Q3

REPORT INFORMATION
  Report Type: Spontaneous
  Country: US (occurrence: US)
  Receive Date: 20200814
  Receipt Date: 20200814
  Transmission Date: 20201103
  Serious: Yes (Death, Hospitalization, Other)
  Sender: FDA-Public Use
  Company Number: US-PURDUE-USA-2020-0161071

PATIENT
  Sex: Male

DRUGS (1)
  1. OXYCONTIN [Suspect]
     Active Substance: OXYCODONE HYDROCHLORIDE
     Indication: PRODUCT USED FOR UNKNOWN INDICATION
     Dosage: UNK
     Route: 048

REACTIONS (11)
  - Poor peripheral circulation [Unknown]
  - Gangrene [Fatal]
  - Endocarditis bacterial [Fatal]
  - Ventricular tachycardia [Fatal]
  - Bacteraemia [Fatal]
  - Cardiac valve disease [Unknown]
  - Hospitalisation [Unknown]
  - Drug dependence [Unknown]
  - Lactic acidosis [Fatal]
  - Cyanosis [Unknown]
  - Staphylococcal infection [Unknown]
